FAERS Safety Report 19383922 (Version 1)
Quarter: 2021Q2

REPORT INFORMATION
  Report Type: Spontaneous
  Country: US (occurrence: US)
  Receive Date: 20210607
  Receipt Date: 20210607
  Transmission Date: 20210717
  Serious: No
  Sender: FDA-Public Use
  Company Number: US-ORGANON-O2105USA002218

PATIENT
  Age: 23 Year
  Sex: Female
  Weight: 149.6 kg

DRUGS (1)
  1. NEXPLANON [Suspect]
     Active Substance: ETONOGESTREL
     Indication: CONTRACEPTION
     Dosage: 1 IMPLANT, EVERY 3 YEARS
     Dates: start: 201807

REACTIONS (8)
  - Complication of device removal [Not Recovered/Not Resolved]
  - Implant site pain [Recovered/Resolved]
  - Complication of device removal [Not Recovered/Not Resolved]
  - Complication of device removal [Not Recovered/Not Resolved]
  - Implant site paraesthesia [Recovered/Resolved]
  - Device issue [Not Recovered/Not Resolved]
  - Weight increased [Recovered/Resolved]
  - Complication associated with device [Recovered/Resolved]

NARRATIVE: CASE EVENT DATE: 201807
